FAERS Safety Report 20709504 (Version 2)
Quarter: 2022Q3

REPORT INFORMATION
  Report Type: Spontaneous
  Country: US (occurrence: US)
  Receive Date: 20220414
  Receipt Date: 20220720
  Transmission Date: 20221027
  Serious: Yes (Hospitalization, Other)
  Sender: FDA-Public Use
  Company Number: US-JNJFOC-20220415888

PATIENT
  Sex: Male
  Weight: 99.880 kg

DRUGS (11)
  1. SIMPONI [Suspect]
     Active Substance: GOLIMUMAB
     Indication: Ankylosing spondylitis
     Route: 058
  2. SIMPONI [Suspect]
     Active Substance: GOLIMUMAB
  3. TORSEMIDE [Concomitant]
     Active Substance: TORSEMIDE
  4. CYMBALTA [Concomitant]
     Active Substance: DULOXETINE HYDROCHLORIDE
  5. ALLOPURINOL [Concomitant]
     Active Substance: ALLOPURINOL
  6. METFORMIN [Concomitant]
     Active Substance: METFORMIN HYDROCHLORIDE
  7. SULFASALAZINE [Concomitant]
     Active Substance: SULFASALAZINE
  8. NORTRIPTYLINE [Concomitant]
     Active Substance: NORTRIPTYLINE
  9. ATORVASTATIN [Concomitant]
     Active Substance: ATORVASTATIN
  10. METOPROLOL [Concomitant]
     Active Substance: METOPROLOL
  11. PREGABALIN [Concomitant]
     Active Substance: PREGABALIN

REACTIONS (6)
  - Sepsis [Unknown]
  - Pneumonia viral [Unknown]
  - Hip arthroplasty [Unknown]
  - Tonsillitis [Unknown]
  - Ankylosing spondylitis [Unknown]
  - Irritable bowel syndrome [Unknown]
